FAERS Safety Report 6418143-X (Version None)
Quarter: 2009Q4

REPORT INFORMATION
  Report Type: 
  Country: None (occurrence: None)
  Receive Date: 20091026
  Receipt Date: 20090826
  Transmission Date: 20100525
  Serious: No
  Sender: FDA-Public Use
  Company Number: US-000824

PATIENT
  Sex: Male

DRUGS (8)
  1. DEGARELIX 240 MG [Suspect]
     Indication: PROSTATE CANCER
     Dosage: 240 MG 1X/MONTH SUBCUTANEOUS
     Route: 058
     Dates: start: 20090826, end: 20090826
  2. ASPIRIN [Concomitant]
  3. BENICAR [Concomitant]
  4. CELEBREX [Concomitant]
  5. PREVACID [Concomitant]
  6. ZOCOR [Concomitant]
  7. VASOTEC [Concomitant]
  8. VERAPAMIL [Concomitant]

REACTIONS (1)
  - ABDOMINAL PAIN [None]
